FAERS Safety Report 14425280 (Version 2)
Quarter: 2018Q1

REPORT INFORMATION
  Report Type: Spontaneous
  Country: US (occurrence: US)
  Receive Date: 20180123
  Receipt Date: 20180223
  Transmission Date: 20180509
  Serious: No
  Sender: FDA-Public Use
  Company Number: US-JNJFOC-20180116940

PATIENT
  Sex: Female
  Weight: 53.07 kg

DRUGS (1)
  1. DARZALEX [Suspect]
     Active Substance: DARATUMUMAB
     Indication: PLASMA CELL MYELOMA
     Dosage: THERAPY DATES 18-JAN, 08-FEB, 22-FEB, 08-MAR, 22-MAR, 05-APR, 19-APR, 03-MAY, 31-MAY
     Route: 042

REACTIONS (2)
  - Hypomagnesaemia [Unknown]
  - Diarrhoea [Unknown]
